FAERS Safety Report 20954699 (Version 1)
Quarter: 2022Q2

REPORT INFORMATION
  Report Type: Spontaneous
  Country: ES (occurrence: ES)
  Receive Date: 20220614
  Receipt Date: 20220614
  Transmission Date: 20220721
  Serious: No
  Sender: FDA-Public Use
  Company Number: None

PATIENT
  Age: 48 Year
  Sex: Male
  Weight: 113 kg

DRUGS (2)
  1. JARDIANCE [Suspect]
     Active Substance: EMPAGLIFLOZIN
     Indication: Diabetes mellitus
     Dosage: 1 TABLET PER DAY
     Route: 048
     Dates: start: 20220212
  2. EFFICIB 50 mg/1000 mg [Concomitant]
     Indication: Diabetes mellitus
     Dosage: 2 PER DAY
     Dates: start: 20170501

REACTIONS (2)
  - Weight decreased [Unknown]
  - Urine ketone body present [Unknown]

NARRATIVE: CASE EVENT DATE: 20220228
